FAERS Safety Report 6427483-X (Version None)
Quarter: 2009Q4

REPORT INFORMATION
  Report Type: 
  Country: None (occurrence: None)
  Receive Date: 20091104
  Receipt Date: 20091021
  Transmission Date: 20100525
  Serious: Yes (Other)
  Sender: FDA-Public Use
  Company Number: PHMT2006CA01418

PATIENT
  Sex: Female

DRUGS (9)
  1. CLOZARIL [Suspect]
     Indication: SCHIZOPHRENIA
     Dosage: 250 MG, QD
     Route: 048
     Dates: start: 19940101, end: 20060217
  2. CLOZARIL [Suspect]
     Dosage: 400 MG DAILY
     Route: 048
     Dates: end: 20060811
  3. TOPIRAMATE [Concomitant]
     Dosage: 100 MG AT BREAKFAST AND 100 MG SUPPER
  4. CLONAZEPAM [Concomitant]
     Dosage: 0.5MG AT BREAKFAST AND 0.5 MG SUPPER
  5. CITALOPRAM HYDROBROMIDE [Concomitant]
     Dosage: 60 MG BREAKFAST
  6. OLANZAPINE [Concomitant]
  7. SERTRALINE HCL [Concomitant]
     Dosage: UNK
     Dates: end: 20060104
  8. RIVAVIRIN [Concomitant]
  9. ZOCOR [Concomitant]
     Dosage: UNK
     Dates: end: 20060101

REACTIONS (7)
  - HEPATITIS C [None]
  - INFLUENZA LIKE ILLNESS [None]
  - LIVER FUNCTION TEST ABNORMAL [None]
  - NEUTROPENIA [None]
  - SLEEP DISORDER [None]
  - URINARY TRACT INFECTION [None]
  - WHITE BLOOD CELL COUNT DECREASED [None]
